FAERS Safety Report 6027644-8 (Version None)
Quarter: 2009Q1

REPORT INFORMATION
  Report Type: 
  Country: None (occurrence: None)
  Receive Date: 20090105
  Receipt Date: 20080711
  Transmission Date: 20090719
  Serious: No
  Sender: FDA-Public Use
  Company Number: US-BAYER-200813060BCC

PATIENT
  Sex: Female

DRUGS (2)
  1. ALEVE [Suspect]
     Indication: DYSMENORRHOEA
     Route: 048
  2. TORADOL [Concomitant]
     Indication: DYSMENORRHOEA

REACTIONS (2)
  - DYSMENORRHOEA [None]
  - NAUSEA [None]
